FAERS Safety Report 9161261 (Version 1)
Quarter: 2013Q1

REPORT INFORMATION
  Report Type: Spontaneous
  Country: BR (occurrence: BR)
  Receive Date: 20130313
  Receipt Date: 20130313
  Transmission Date: 20140127
  Serious: Yes (Other)
  Sender: FDA-Public Use
  Company Number: BR-009507513-1303BRA005566

PATIENT
  Sex: Female
  Weight: 82 kg

DRUGS (4)
  1. LOSARTAN POTASSIUM [Suspect]
     Dosage: UNK
     Dates: start: 2012
  2. OLMETEC [Concomitant]
     Dosage: 40 MG, UNK
     Dates: end: 2012
  3. OLMETEC [Concomitant]
     Dosage: 40 MG, UNK
  4. HYDROCHLOROTHIAZIDE [Concomitant]

REACTIONS (3)
  - Renal surgery [Recovered/Resolved]
  - Pain [Unknown]
  - Swelling [Unknown]
